FAERS Safety Report 23920271 (Version 1)
Quarter: 2024Q2

REPORT INFORMATION
  Report Type: Spontaneous
  Country: US (occurrence: None)
  Receive Date: 20240530
  Receipt Date: 20240530
  Transmission Date: 20240715
  Serious: Yes (Hospitalization)
  Sender: FDA-Public Use
  Company Number: None

PATIENT
  Age: 66 Year
  Sex: Male
  Weight: 72.5 kg

DRUGS (2)
  1. DACLATASVIR [Suspect]
     Active Substance: DACLATASVIR
     Dosage: FREQUENCY : DAILY;?
     Route: 048
     Dates: start: 20150923, end: 20151223
  2. SOFOSBUVIR [Suspect]
     Active Substance: SOFOSBUVIR
     Dosage: FREQUENCY : DAILY;?
     Route: 048
     Dates: start: 20150923, end: 20151223

REACTIONS (3)
  - Atrial fibrillation [None]
  - Palpitations [None]
  - Supraventricular bradycardia [None]

NARRATIVE: CASE EVENT DATE: 20151118
